FAERS Safety Report 5085332-9 (Version None)
Quarter: 2006Q3

REPORT INFORMATION
  Report Type: 
  Country: None (occurrence: None)
  Receive Date: 20060816
  Receipt Date: 20060807
  Transmission Date: 20061208
  Serious: Yes (Death, Hospitalization, Other)
  Sender: FDA-Public Use
  Company Number: GB-2006-004752

PATIENT
  Age: 68 Year
  Sex: Male
  Weight: 100 kg

DRUGS (7)
  1. CAMPATH [Suspect]
     Indication: CHRONIC LYMPHOCYTIC LEUKAEMIA
     Dosage: 30 MG, 3X/WEEK, SUBCUTANEOUS
     Route: 058
     Dates: start: 20051114, end: 20060303
  2. ACYCLOVIR [Concomitant]
  3. AMILORIDE [Concomitant]
  4. BUMETANIDE [Concomitant]
  5. LANSOPRAZOLE [Concomitant]
  6. PREDNISOLONE [Concomitant]
  7. ITRACONAZOLE [Concomitant]

REACTIONS (7)
  - ATRIOVENTRICULAR BLOCK SECOND DEGREE [None]
  - ATRIOVENTRICULAR BLOCK THIRD DEGREE [None]
  - BRADYCARDIA [None]
  - CHRONIC LYMPHOCYTIC LEUKAEMIA [None]
  - FALL [None]
  - MALIGNANT NEOPLASM PROGRESSION [None]
  - NOSOCOMIAL INFECTION [None]
